FAERS Safety Report 4532403-9 (Version None)
Quarter: 2004Q4

REPORT INFORMATION
  Report Type: 
  Country: None (occurrence: None)
  Receive Date: 20041217
  Receipt Date: 20041208
  Transmission Date: 20050328
  Serious: Yes (Death)
  Sender: FDA-Public Use
  Company Number: USA-2004-0017953

PATIENT
  Age: 53 Year
  Sex: Male

DRUGS (1)
  1. SPECTRACEF [Suspect]
     Indication: BRONCHITIS CHRONIC
     Dosage: 400 MG , BID
     Dates: start: 20041101, end: 20041101

REACTIONS (10)
  - ARRHYTHMIA [None]
  - BRONCHITIS ACUTE [None]
  - CARDIAC ARREST [None]
  - CHEST DISCOMFORT [None]
  - CORONARY ARTERY DISEASE [None]
  - DYSPNOEA [None]
  - HYPERHIDROSIS [None]
  - PALPITATIONS [None]
  - SUDDEN DEATH [None]
  - VENTRICULAR HYPERTROPHY [None]
